FAERS Safety Report 5894683-7 (Version None)
Quarter: 2008Q3

REPORT INFORMATION
  Report Type: 
  Country: None (occurrence: None)
  Receive Date: 20080922
  Receipt Date: 20080908
  Transmission Date: 20090109
  Serious: Yes (Other)
  Sender: FDA-Public Use
  Company Number: 1000001010

PATIENT
  Age: 32 Year
  Sex: Female
  Weight: 55 kg

DRUGS (2)
  1. CITALOPRAM HYDROBROMIDE [Suspect]
     Indication: DEPRESSION
     Dosage: 20 MG, (20 MG, 1 IN 1 D), ORAL
     Route: 048
     Dates: start: 20030715, end: 20050802
  2. DUSPATAL RETARD [Concomitant]

REACTIONS (2)
  - DENTAL CARIES [None]
  - DRY MOUTH [None]
